FAERS Safety Report 23778213 (Version 1)
Quarter: 2024Q2

REPORT INFORMATION
  Report Type: Spontaneous
  Country: CN (occurrence: CN)
  Receive Date: 20240424
  Receipt Date: 20240424
  Transmission Date: 20240716
  Serious: Yes (Other)
  Sender: FDA-Public Use
  Company Number: CN-PFIZER INC-PV202400052249

PATIENT
  Age: 75 Year
  Sex: Female
  Weight: 61 kg

DRUGS (4)
  1. METHYLPREDNISOLONE [Suspect]
     Active Substance: METHYLPREDNISOLONE
     Indication: Brain oedema
     Dosage: 4 MG, 1X/DAY
     Route: 048
     Dates: start: 20240409, end: 20240413
  2. TISLELIZUMAB [Suspect]
     Active Substance: TISLELIZUMAB
     Indication: Neoplasm
     Dosage: 200 MG, 1X/DAY
     Route: 041
     Dates: start: 20240322, end: 20240322
  3. CARBOPLATIN [Suspect]
     Active Substance: CARBOPLATIN
     Indication: Neoplasm
     Dosage: 350 MG, 1X/DAY
     Route: 041
     Dates: start: 20240322, end: 20240322
  4. PEMETREXED DISODIUM [Suspect]
     Active Substance: PEMETREXED DISODIUM
     Indication: Neoplasm
     Dosage: 800 MG, 1X/DAY
     Route: 041
     Dates: start: 20240322, end: 20240322

REACTIONS (2)
  - Adrenal insufficiency [Not Recovered/Not Resolved]
  - Secondary adrenocortical insufficiency [Unknown]

NARRATIVE: CASE EVENT DATE: 20240401
